FAERS Safety Report 8924855 (Version 2)
Quarter: 2012Q4

REPORT INFORMATION
  Report Type: 
  Country: IT (occurrence: IT)
  Receive Date: 20121126
  Receipt Date: 20121212
  Transmission Date: 20130627
  Serious: Yes (Hospitalization)
  Sender: FDA-Public Use
  Company Number: IT-ASTRAZENECA-2012SE86384

PATIENT
  Age: 21059 Day
  Sex: Female

DRUGS (4)
  1. ESOPRAL [Suspect]
     Indication: ABDOMINAL PAIN UPPER
     Route: 041
     Dates: start: 20121022, end: 20121022
  2. PLASIL [Concomitant]
     Indication: VOMITING
     Dosage: 10mg/2ml solution for injection
     Route: 041
     Dates: start: 20121022, end: 20121022
  3. URBASON [Concomitant]
     Indication: BRONCHOSPASM
     Dosage: 40mg/ml powder and solvent for solution for injection
     Route: 041
     Dates: start: 20121022, end: 20121022
  4. TORA-DOL [Concomitant]
     Indication: ABDOMINAL PAIN UPPER
     Dosage: 10mg/ml solution for injection
     Route: 041
     Dates: start: 20121022, end: 20121022

REACTIONS (2)
  - Asthmatic crisis [Recovering/Resolving]
  - Urticaria [Recovering/Resolving]
